FAERS Safety Report 8853404 (Version 1)
Quarter: 2012Q4

REPORT INFORMATION
  Report Type: 
  Country: US (occurrence: US)
  Receive Date: 20121022
  Receipt Date: 20121022
  Transmission Date: 20130627
  Serious: Yes (Other)
  Sender: FDA-Public Use
  Company Number: US-PFIZER INC-2012258618

PATIENT
  Age: 80 Year
  Sex: Male
  Weight: 141 kg

DRUGS (6)
  1. GENOTROPIN [Suspect]
     Indication: PROLACTINOMA
     Dosage: 0.5 mg, 5x/week
     Route: 058
  2. LASIX [Concomitant]
     Indication: HYPERLIPIDAEMIA
     Dosage: 20 mg, daily
     Route: 048
  3. LASIX [Concomitant]
     Indication: LYMPHOEDEMA
  4. SYNTHROID [Concomitant]
     Indication: HYPOTHYROIDISM
     Dosage: 50 ug, daily
     Route: 048
  5. LISINOPRIL [Concomitant]
     Indication: HYPERTENSION
     Dosage: 5 mg, daily
  6. BROMOCRIPTINE [Concomitant]
     Indication: PROLACTINOMA
     Dosage: 5 mg, daily

REACTIONS (3)
  - Diverticulitis [Recovering/Resolving]
  - Renal disorder [Unknown]
  - Expired drug administered [Unknown]
